FAERS Safety Report 12622606 (Version 7)
Quarter: 2020Q1

REPORT INFORMATION
  Report Type: Report from Study
  Country: US (occurrence: US)
  Receive Date: 20160804
  Receipt Date: 20200205
  Transmission Date: 20200409
  Serious: Yes (Hospitalization, Other)
  Sender: FDA-Public Use
  Company Number: US-ARIAD PHARMACEUTICALS, INC-2016US006716

PATIENT
  Age: 63 Year
  Sex: Female

DRUGS (6)
  1. PONATINIB [Suspect]
     Active Substance: PONATINIB
     Indication: CHRONIC MYELOID LEUKAEMIA
     Dosage: 45 MG, QD
     Route: 048
     Dates: start: 20141223
  2. PONATINIB [Suspect]
     Active Substance: PONATINIB
     Dosage: 45 MG, QD
     Route: 048
  3. PONATINIB [Suspect]
     Active Substance: PONATINIB
     Dosage: 30 MG, QD
     Route: 048
  4. PONATINIB [Suspect]
     Active Substance: PONATINIB
     Dosage: 30 MG, QD
     Route: 048
  5. PONATINIB [Suspect]
     Active Substance: PONATINIB
     Dosage: 30 MG, QD
     Route: 048
  6. PONATINIB [Suspect]
     Active Substance: PONATINIB
     Dosage: 45 MILLIGRAM, QOD
     Route: 048
     Dates: start: 20200117

REACTIONS (13)
  - Sepsis [Unknown]
  - Sciatica [Not Recovered/Not Resolved]
  - Off label use [Unknown]
  - Vitamin D decreased [Unknown]
  - Rash macular [Unknown]
  - Dermatitis [Unknown]
  - Stress cardiomyopathy [Unknown]
  - Anaemia [Unknown]
  - Bronchospasm [Recovered/Resolved]
  - Rhinorrhoea [Unknown]
  - Vocal cord dysfunction [Recovered/Resolved]
  - Oedema peripheral [Unknown]
  - Dry skin [Unknown]

NARRATIVE: CASE EVENT DATE: 20160423
